FAERS Safety Report 8120463-8 (Version None)
Quarter: 2012Q1

REPORT INFORMATION
  Report Type: 
  Country: None (occurrence: None)
  Receive Date: 20120207
  Receipt Date: 20120203
  Transmission Date: 20120608
  Serious: Yes (Death, Other)
  Sender: FDA-Public Use
  Company Number: PHHY2011US21252

PATIENT
  Sex: Female

DRUGS (2)
  1. LOSARTAN POTASSIUM [Concomitant]
     Indication: HYPERTENSION
     Dosage: 50 MG, QD
     Route: 048
     Dates: start: 20110501
  2. GILENYA [Suspect]
     Indication: RELAPSING-REMITTING MULTIPLE SCLEROSIS
     Dosage: 0.5 MG, QD
     Route: 048
     Dates: start: 20110124

REACTIONS (21)
  - HYPERTHERMIA [None]
  - MALAISE [None]
  - OROPHARYNGEAL PAIN [None]
  - SKIN LESION [None]
  - CARDIAC ARREST [None]
  - PULMONARY OEDEMA [None]
  - PYREXIA [None]
  - RASH [None]
  - MITRAL VALVE INCOMPETENCE [None]
  - HEADACHE [None]
  - BRADYCARDIA [None]
  - PULMONARY CONGESTION [None]
  - FURUNCLE [None]
  - ARTERIOSCLEROSIS [None]
  - ARRHYTHMIA [None]
  - ACUTE LEFT VENTRICULAR FAILURE [None]
  - TRICUSPID VALVE INCOMPETENCE [None]
  - HYPOPERFUSION [None]
  - CARDIAC MURMUR [None]
  - MUSCULAR WEAKNESS [None]
  - COUGH [None]
